FAERS Safety Report 23401883 (Version 1)
Quarter: 2024Q1

REPORT INFORMATION
  Report Type: Spontaneous
  Country: US (occurrence: US)
  Receive Date: 20240115
  Receipt Date: 20240115
  Transmission Date: 20240410
  Serious: No
  Sender: FDA-Public Use
  Company Number: US-009507513-2401USA004818

PATIENT
  Age: 94 Year
  Sex: Male

DRUGS (1)
  1. MOLNUPIRAVIR [Suspect]
     Active Substance: MOLNUPIRAVIR
     Indication: SARS-CoV-2 test positive
     Dosage: UNK
     Route: 048
     Dates: start: 20240103

REACTIONS (2)
  - Dysphagia [Unknown]
  - Product administration error [Unknown]

NARRATIVE: CASE EVENT DATE: 20240103
